FAERS Safety Report 14971373 (Version 1)
Quarter: 2018Q2

REPORT INFORMATION
  Report Type: Spontaneous
  Country: US (occurrence: US)
  Receive Date: 20180514
  Receipt Date: 20180514
  Transmission Date: 20180711
  Serious: No
  Sender: FDA-Public Use
  Company Number: None

PATIENT
  Age: 57 Year
  Sex: Female
  Weight: 63 kg

DRUGS (2)
  1. COREG [Concomitant]
     Active Substance: CARVEDILOL
  2. ROPINEROLE HCL 2 MG TABLET [Suspect]
     Active Substance: ROPINIROLE HYDROCHLORIDE
     Indication: RESTLESS LEGS SYNDROME
     Dosage: QUANTITY:1 TABLET(S); AT BEDTIME?
     Route: 048

REACTIONS (3)
  - Product quality issue [None]
  - Drug effect decreased [None]
  - Restlessness [None]

NARRATIVE: CASE EVENT DATE: 20180324
